FAERS Safety Report 10377656 (Version 1)
Quarter: 2014Q3

REPORT INFORMATION
  Report Type: Spontaneous
  Country: IT (occurrence: IT)
  Receive Date: 20140812
  Receipt Date: 20140812
  Transmission Date: 20150326
  Serious: Yes (Other)
  Sender: FDA-Public Use
  Company Number: PHHY2014IT097644

PATIENT
  Age: 55 Year
  Sex: Male

DRUGS (2)
  1. DEFERASIROX [Suspect]
     Active Substance: DEFERASIROX
     Indication: THALASSAEMIA BETA
     Route: 048
  2. DEFEROXAMINE [Suspect]
     Active Substance: DEFEROXAMINE\DEFEROXAMINE MESYLATE
     Indication: THALASSAEMIA BETA
     Dosage: 3 G PER DAY

REACTIONS (5)
  - Visual acuity reduced [Unknown]
  - Retinopathy [Unknown]
  - Drug ineffective [Unknown]
  - Retinal dystrophy [Unknown]
  - Retinal degeneration [Unknown]
